FAERS Safety Report 5913655-7 (Version None)
Quarter: 2008Q4

REPORT INFORMATION
  Report Type: 
  Country: None (occurrence: None)
  Receive Date: 20081009
  Receipt Date: 20080926
  Transmission Date: 20090506
  Serious: Yes (Hospitalization, Other)
  Sender: FDA-Public Use
  Company Number: US-AMGEN-QUU309998

PATIENT
  Sex: Female

DRUGS (3)
  1. NEULASTA [Suspect]
     Indication: CHEMOTHERAPY
  2. NEUPOGEN [Suspect]
     Indication: CHEMOTHERAPY
  3. CARBOTAXOL [Concomitant]

REACTIONS (4)
  - BONE PAIN [None]
  - ERYTHEMA [None]
  - RASH [None]
  - SKIN REACTION [None]
